FAERS Safety Report 11043440 (Version 1)
Quarter: 2015Q2

REPORT INFORMATION
  Report Type: Spontaneous
  Country: US (occurrence: US)
  Receive Date: 20150417
  Receipt Date: 20150417
  Transmission Date: 20150821
  Serious: No
  Sender: FDA-Public Use
  Company Number: US-BIOGENIDEC-2015BI048555

PATIENT
  Age: 53 Year
  Sex: Male

DRUGS (1)
  1. AVONEX [Suspect]
     Active Substance: INTERFERON BETA-1A
     Indication: MULTIPLE SCLEROSIS
     Route: 030
     Dates: start: 20140306, end: 20150401

REACTIONS (8)
  - Constipation [Unknown]
  - Muscle disorder [Unknown]
  - Myalgia [Unknown]
  - Speech disorder [Recovered/Resolved]
  - Drug ineffective [Unknown]
  - General physical health deterioration [Unknown]
  - Hypophagia [Unknown]
  - Dyspnoea [Recovered/Resolved]
